FAERS Safety Report 5384134-3 (Version None)
Quarter: 2007Q3

REPORT INFORMATION
  Report Type: 
  Country: None (occurrence: None)
  Receive Date: 20070709
  Receipt Date: 20060831
  Transmission Date: 20080115
  Serious: Yes (Other)
  Sender: FDA-Public Use
  Company Number: US-2006-025483

PATIENT
  Age: 54 Year
  Sex: Female
  Weight: 59 kg

DRUGS (1)
  1. ULTRAVIST 300 [Suspect]
     Indication: COMPUTERISED TOMOGRAM ABDOMEN
     Dosage: 130 ML, 1 DOSE, INTRAVENOUS
     Route: 042
     Dates: start: 20060809, end: 20060809

REACTIONS (4)
  - DYSPNOEA [None]
  - SWELLING FACE [None]
  - TREMOR [None]
  - URTICARIA [None]
